FAERS Safety Report 9698629 (Version 1)
Quarter: 2013Q4

REPORT INFORMATION
  Report Type: Spontaneous
  Country: US (occurrence: US)
  Receive Date: 20131120
  Receipt Date: 20131120
  Transmission Date: 20140711
  Serious: Yes (Other)
  Sender: FDA-Public Use
  Company Number: US-MPIJNJ-2013MPI000965

PATIENT
  Sex: Male

DRUGS (7)
  1. VELCADE [Suspect]
     Indication: PLASMA CELL MYELOMA
     Dosage: UNK
  2. VELCADE [Suspect]
     Dosage: UNK
     Dates: start: 201205, end: 201206
  3. THALOMID [Suspect]
     Indication: PLASMA CELL MYELOMA
     Dosage: 200 MG, QD
     Route: 048
     Dates: start: 201107, end: 201111
  4. DEXAMETHASONE [Suspect]
     Indication: PLASMA CELL MYELOMA
  5. ZOMETA [Concomitant]
     Indication: PRODUCT USED FOR UNKNOWN INDICATION
     Dosage: UNK
     Dates: start: 201109, end: 201308
  6. INTERFERON [Concomitant]
     Indication: HEPATITIS C
     Dosage: UNK
     Dates: start: 201103
  7. RIBAVIRIN [Concomitant]
     Indication: HEPATITIS C
     Dosage: UNK
     Dates: start: 201103

REACTIONS (2)
  - Non-small cell lung cancer stage II [Not Recovered/Not Resolved]
  - Staphylococcal bacteraemia [Unknown]
